FAERS Safety Report 11992290 (Version 1)
Quarter: 2016Q1

REPORT INFORMATION
  Report Type: Spontaneous
  Country: US (occurrence: US)
  Receive Date: 20160203
  Receipt Date: 20160203
  Transmission Date: 20160526
  Serious: No
  Sender: FDA-Public Use
  Company Number: US-JNJFOC-20151223987

PATIENT
  Age: 2 Month
  Sex: Female
  Weight: 5.9 kg

DRUGS (1)
  1. INFANTS TYLENOL [Suspect]
     Active Substance: ACETAMINOPHEN
     Indication: INJECTION
     Route: 065

REACTIONS (3)
  - Product use issue [Unknown]
  - Vomiting [Unknown]
  - Off label use [Unknown]
